FAERS Safety Report 7087065-6 (Version None)
Quarter: 2010Q4

REPORT INFORMATION
  Report Type: 
  Country: None (occurrence: None)
  Receive Date: 20101106
  Receipt Date: 20101102
  Transmission Date: 20110411
  Serious: No
  Sender: FDA-Public Use
  Company Number: US-WYE-H18130410

PATIENT
  Age: 85 Year
  Sex: Female
  Weight: 50.85 kg

DRUGS (3)
  1. ADVIL [Suspect]
     Indication: ANALGESIC THERAPY
     Dosage: 1 CAPLET 2-3 TIMES
     Route: 048
     Dates: start: 20101001, end: 20101011
  2. LIPITOR [Concomitant]
  3. FELODIPINE [Concomitant]

REACTIONS (3)
  - BURNING SENSATION [None]
  - CONSTIPATION [None]
  - INSOMNIA [None]
